FAERS Safety Report 7532998-7 (Version None)
Quarter: 2011Q2

REPORT INFORMATION
  Report Type: 
  Country: None (occurrence: None)
  Receive Date: 20110608
  Receipt Date: 20110526
  Transmission Date: 20111010
  Serious: Yes (Other)
  Sender: FDA-Public Use
  Company Number: US-CELGENEUS-163-21880-11053656

PATIENT
  Sex: Male

DRUGS (4)
  1. ACYCLOVIR [Concomitant]
     Route: 065
  2. PREGABALIN [Concomitant]
     Route: 065
  3. REVLIMID [Suspect]
     Indication: MULTIPLE MYELOMA
     Dosage: 10 MILLIGRAM
     Route: 048
     Dates: start: 20101101, end: 20110101
  4. VARDENAFIL HYDROCHLORIDE (LEVITRA) [Concomitant]
     Route: 065

REACTIONS (1)
  - GYNAECOMASTIA [None]
